FAERS Safety Report 5258170-1 (Version None)
Quarter: 2007Q1

REPORT INFORMATION
  Report Type: 
  Country: None (occurrence: None)
  Receive Date: 20070307
  Receipt Date: 20070222
  Transmission Date: 20070707
  Serious: Yes (Death, Hospitalization)
  Sender: FDA-Public Use
  Company Number: US-BAXTER-2007BH002672

PATIENT
  Age: 62 Year
  Sex: Male
  Weight: 63 kg

DRUGS (21)
  1. HYLENEX RECOMBINANT [Suspect]
     Indication: DRUG USE FOR UNKNOWN INDICATION
     Route: 058
     Dates: start: 20060714
  2. LIDOCAINE [Suspect]
     Indication: PAIN
     Route: 058
     Dates: start: 20060714
  3. LIDOCAINE [Suspect]
     Route: 058
     Dates: start: 20060714
  4. LIDOCAINE [Suspect]
     Route: 058
     Dates: start: 20060714
  5. LIDOCAINE [Suspect]
     Route: 058
     Dates: start: 20060715
  6. SUFENTANIL CITRATE [Concomitant]
     Indication: DRUG USE FOR UNKNOWN INDICATION
     Route: 058
  7. DEXAMETHASONE [Concomitant]
     Indication: DRUG USE FOR UNKNOWN INDICATION
     Route: 048
  8. PREGABALIN [Concomitant]
     Indication: DRUG USE FOR UNKNOWN INDICATION
     Route: 048
  9. HALOPERIDOL [Concomitant]
     Indication: AGITATION
     Route: 065
  10. LORAZEPAM [Concomitant]
     Route: 048
  11. NICOTINE [Concomitant]
     Indication: DRUG USE FOR UNKNOWN INDICATION
     Route: 062
     Dates: start: 20060714
  12. DEXAMETHASONE [Concomitant]
     Route: 065
     Dates: start: 20060714
  13. HALOPERIDOL [Concomitant]
     Indication: DRUG USE FOR UNKNOWN INDICATION
     Route: 058
     Dates: start: 20060714
  14. BENZTROPINE MESYLATE [Concomitant]
     Indication: DRUG USE FOR UNKNOWN INDICATION
     Route: 058
     Dates: start: 20060714
  15. ACETAMINOPHEN [Concomitant]
     Indication: DRUG USE FOR UNKNOWN INDICATION
     Route: 048
     Dates: start: 20060714
  16. SUFENTANIL CITRATE [Concomitant]
     Route: 065
     Dates: start: 20060715
  17. HALOPERIDOL [Concomitant]
     Route: 058
     Dates: start: 20060715
  18. GLYCOPYRROLATE [Concomitant]
     Indication: DRUG USE FOR UNKNOWN INDICATION
     Route: 058
     Dates: start: 20060715
  19. CHLORPROMAZINE [Concomitant]
     Indication: DRUG USE FOR UNKNOWN INDICATION
     Route: 054
     Dates: start: 20060715
  20. CHLORPROMAZINE [Concomitant]
     Route: 058
     Dates: start: 20060715
  21. CHLORPROMAZINE [Concomitant]
     Route: 058
     Dates: start: 20060716

REACTIONS (3)
  - CONVULSION [None]
  - DELIRIUM [None]
  - PYREXIA [None]
